FAERS Safety Report 13725049 (Version 2)
Quarter: 2017Q3

REPORT INFORMATION
  Report Type: Spontaneous
  Country: FR (occurrence: FR)
  Receive Date: 20170706
  Receipt Date: 20170706
  Transmission Date: 20171127
  Serious: Yes (Hospitalization)
  Sender: FDA-Public Use
  Company Number: FR-BAYER-2017-128520

PATIENT
  Age: 47 Year
  Sex: Female

DRUGS (1)
  1. MIRENA [Suspect]
     Active Substance: LEVONORGESTREL
     Indication: CONTRACEPTION
     Dosage: 20 MCG/24HR, CONT
     Route: 015
     Dates: start: 2003, end: 201610

REACTIONS (10)
  - Loss of libido [Recovered/Resolved]
  - Breast mass [Not Recovered/Not Resolved]
  - Diffuse alopecia [Unknown]
  - Headache [Unknown]
  - Arthralgia [Recovered/Resolved]
  - Hypothyroidism [Not Recovered/Not Resolved]
  - Depression [Recovering/Resolving]
  - Abdominal distension [Unknown]
  - Fatigue [Recovered/Resolved]
  - Weight increased [Recovered/Resolved]

NARRATIVE: CASE EVENT DATE: 2007
